FAERS Safety Report 9059403 (Version 5)
Quarter: 2014Q1

REPORT INFORMATION
  Report Type: Report from Study
  Country: JP (occurrence: JP)
  Receive Date: 20130211
  Receipt Date: 20140310
  Transmission Date: 20141002
  Serious: Yes (Death)
  Sender: FDA-Public Use
  Company Number: JP-GLAXOSMITHKLINE-B0866153A

PATIENT
  Age: 76 Year
  Sex: Female
  Weight: 49 kg

DRUGS (5)
  1. VOTRIENT 200MG [Suspect]
     Indication: LEIOMYOSARCOMA
     Dosage: 600MG PER DAY
     Route: 048
     Dates: start: 20121220, end: 20130311
  2. TAKEPRON [Concomitant]
     Route: 065
  3. NORVASC [Concomitant]
     Indication: HYPERTENSION
     Route: 048
  4. ADALAT [Concomitant]
     Indication: HYPERTENSION
     Route: 048
  5. ZOMETA [Concomitant]
     Route: 042
     Dates: end: 20130221

REACTIONS (3)
  - Pneumothorax [Fatal]
  - Haemoptysis [Recovered/Resolved]
  - Hypertension [Recovering/Resolving]
